FAERS Safety Report 7349577-7 (Version None)
Quarter: 2011Q1

REPORT INFORMATION
  Report Type: 
  Country: None (occurrence: None)
  Receive Date: 20110314
  Receipt Date: 20110307
  Transmission Date: 20110831
  Serious: Yes (Hospitalization)
  Sender: FDA-Public Use
  Company Number: US-SANOFI-AVENTIS-2011SA014440

PATIENT
  Sex: Female

DRUGS (1)
  1. AMARYL [Suspect]
     Route: 048
     Dates: start: 20110101, end: 20110301

REACTIONS (5)
  - ASTHENIA [None]
  - VISION BLURRED [None]
  - CARDIAC FAILURE CONGESTIVE [None]
  - DIZZINESS [None]
  - PERIPHERAL COLDNESS [None]
